FAERS Safety Report 25170693 (Version 2)
Quarter: 2025Q4

REPORT INFORMATION
  Report Type: Spontaneous
  Country: US (occurrence: US)
  Receive Date: 20250408
  Receipt Date: 20251022
  Transmission Date: 20260117
  Serious: Yes (Other)
  Sender: NOVO NORDISK
  Company Number: US-NOVOPROD-1401227

PATIENT
  Age: 67 Year
  Sex: Female

DRUGS (3)
  1. OZEMPIC [Suspect]
     Active Substance: SEMAGLUTIDE
     Indication: Weight control
     Dosage: 1 MG, QW
     Route: 058
     Dates: start: 202106
  2. OZEMPIC [Suspect]
     Active Substance: SEMAGLUTIDE
     Indication: Hepatic steatosis
  3. OZEMPIC [Suspect]
     Active Substance: SEMAGLUTIDE
     Indication: Sleep apnoea syndrome

REACTIONS (2)
  - Gallbladder operation [Unknown]
  - Product use in unapproved indication [Not Recovered/Not Resolved]

NARRATIVE: CASE EVENT DATE: 20250322
